FAERS Safety Report 8669506 (Version 2)
Quarter: 2013Q4

REPORT INFORMATION
  Report Type: Spontaneous
  Country: CO (occurrence: CO)
  Receive Date: 20120718
  Receipt Date: 20131107
  Transmission Date: 20140711
  Serious: Yes (Death)
  Sender: FDA-Public Use
  Company Number: CO-009507513-1207COL000606

PATIENT
  Age: 64 Year
  Sex: Female

DRUGS (2)
  1. PEG-INTRON [Suspect]
     Indication: HEPATITIS B
     Dosage: 80 MICROGRAM, QD
     Dates: start: 20120615
  2. PEG-INTRON [Suspect]
     Dosage: 80 MICROGRAM, QD
     Dates: start: 20120622, end: 20120624

REACTIONS (2)
  - Respiratory failure [Fatal]
  - Atelectasis [Fatal]
